FAERS Safety Report 6130807-4 (Version None)
Quarter: 2009Q1

REPORT INFORMATION
  Report Type: 
  Country: None (occurrence: None)
  Receive Date: 20090325
  Receipt Date: 20090312
  Transmission Date: 20090719
  Serious: Yes (Hospitalization, Other)
  Sender: FDA-Public Use
  Company Number: US-BIOGENIDEC-2009BI001907

PATIENT
  Age: 63 Year
  Sex: Female

DRUGS (1)
  1. TYSABRI [Suspect]
     Indication: MULTIPLE SCLEROSIS
     Route: 042
     Dates: start: 20070216, end: 20081001

REACTIONS (7)
  - COMMINUTED FRACTURE [None]
  - DECUBITUS ULCER [None]
  - IMPAIRED HEALING [None]
  - INFECTION [None]
  - NERVOUS SYSTEM DISORDER [None]
  - POOR PERIPHERAL CIRCULATION [None]
  - STAPHYLOCOCCAL INFECTION [None]
